FAERS Safety Report 5520425-0 (Version None)
Quarter: 2007Q4

REPORT INFORMATION
  Report Type: 
  Country: None (occurrence: None)
  Receive Date: 20071119
  Receipt Date: 20071108
  Transmission Date: 20080405
  Serious: Yes (Hospitalization)
  Sender: FDA-Public Use
  Company Number: US-JNJFOC-20071102842

PATIENT
  Sex: Female
  Weight: 76 kg

DRUGS (3)
  1. INFLIXIMAB [Suspect]
     Indication: COLITIS ULCERATIVE
     Route: 042
  2. 5-ASA [Concomitant]
  3. ZANTAC [Concomitant]

REACTIONS (1)
  - COLITIS [None]
